FAERS Safety Report 15288124 (Version 6)
Quarter: 2018Q4

REPORT INFORMATION
  Report Type: Spontaneous
  Country: US (occurrence: US)
  Receive Date: 20180817
  Receipt Date: 20181129
  Transmission Date: 20190204
  Serious: No
  Sender: FDA-Public Use
  Company Number: US-BIOGEN-2018BI00620582

PATIENT
  Age: 57 Year
  Sex: Female

DRUGS (3)
  1. TECFIDERA [Suspect]
     Active Substance: DIMETHYL FUMARATE
     Dosage: MAINTENANCE DOSE
     Route: 048
     Dates: start: 20180811, end: 20181115
  2. TECFIDERA [Suspect]
     Active Substance: DIMETHYL FUMARATE
     Indication: MULTIPLE SCLEROSIS
     Dosage: STARTING DOSE
     Route: 048
     Dates: start: 20180804, end: 20180810
  3. OCREVUS [Concomitant]
     Active Substance: OCRELIZUMAB
     Indication: MULTIPLE SCLEROSIS
     Route: 065
     Dates: start: 201811

REACTIONS (24)
  - Back pain [Not Recovered/Not Resolved]
  - Malaise [Recovered/Resolved]
  - Cerebral disorder [Unknown]
  - Heart rate increased [Unknown]
  - Abdominal discomfort [Unknown]
  - Peroneal nerve palsy [Recovered/Resolved with Sequelae]
  - Decreased appetite [Recovered/Resolved]
  - Multiple sclerosis [Not Recovered/Not Resolved]
  - Dyspepsia [Unknown]
  - Asthenia [Unknown]
  - Emotional disorder [Unknown]
  - Band sensation [Not Recovered/Not Resolved]
  - Musculoskeletal disorder [Not Recovered/Not Resolved]
  - Intentional underdose [Not Recovered/Not Resolved]
  - Lacrimation increased [Not Recovered/Not Resolved]
  - Thermal burn [Recovered/Resolved]
  - Vomiting [Unknown]
  - Paraesthesia [Not Recovered/Not Resolved]
  - Sensation of foreign body [Recovered/Resolved]
  - Loss of control of legs [Unknown]
  - Amnesia [Not Recovered/Not Resolved]
  - Eating disorder [Unknown]
  - Gait disturbance [Unknown]
  - Gastric disorder [Unknown]

NARRATIVE: CASE EVENT DATE: 2018
